FAERS Safety Report 5157155-3 (Version None)
Quarter: 2006Q4

REPORT INFORMATION
  Report Type: 
  Country: None (occurrence: None)
  Receive Date: 20061127
  Receipt Date: 20061115
  Transmission Date: 20070319
  Serious: Yes (Other)
  Sender: FDA-Public Use
  Company Number: PHEH2006US14362

PATIENT
  Sex: Female

DRUGS (1)
  1. SANDOSTATIN LAR [Suspect]
     Indication: CARCINOID SYNDROME
     Dosage: 30 MG, QW
     Dates: start: 20060101

REACTIONS (4)
  - ANAPHYLACTIC REACTION [None]
  - MALIGNANT NEOPLASM PROGRESSION [None]
  - OOPHORECTOMY [None]
  - SURGERY [None]
